FAERS Safety Report 5886652-8 (Version None)
Quarter: 2008Q3

REPORT INFORMATION
  Report Type: 
  Country: None (occurrence: None)
  Receive Date: 20080917
  Receipt Date: 20080909
  Transmission Date: 20090109
  Serious: Yes (Hospitalization)
  Sender: FDA-Public Use
  Company Number: PHHY2008ES20761

PATIENT
  Age: 80 Year
  Sex: Male

DRUGS (6)
  1. LESCOL [Suspect]
     Indication: HYPERCHOLESTEROLAEMIA
     Dosage: 40 UNK, QD
     Route: 048
     Dates: start: 20050101, end: 20080610
  2. DIAMICRON [Suspect]
     Indication: DIABETES MELLITUS
     Dosage: 80 MG, QD
     Route: 048
     Dates: start: 20050101, end: 20080610
  3. COZAAR [Concomitant]
     Indication: HYPERTENSION
     Dosage: QD
     Route: 048
  4. SEGURIL [Concomitant]
     Dosage: 120 MG, TID
     Route: 048
  5. TIMOFTOL [Concomitant]
     Indication: GLAUCOMA
  6. ASPIRIN [Concomitant]
     Dosage: 100 MG, QD
     Route: 048

REACTIONS (6)
  - ALANINE AMINOTRANSFERASE INCREASED [None]
  - ASPARTATE AMINOTRANSFERASE INCREASED [None]
  - GAMMA-GLUTAMYLTRANSFERASE INCREASED [None]
  - HEPATIC CIRRHOSIS [None]
  - MUSCULAR WEAKNESS [None]
  - PORTAL HYPERTENSION [None]
